FAERS Safety Report 4588017-8 (Version None)
Quarter: 2005Q1

REPORT INFORMATION
  Report Type: 
  Country: None (occurrence: None)
  Receive Date: 20050217
  Receipt Date: 20041019
  Transmission Date: 20050727
  Serious: Yes (Disabling, Other)
  Sender: FDA-Public Use
  Company Number: 2004S1003131

PATIENT
  Age: 77 Year
  Sex: Female
  Weight: 55.7924 kg

DRUGS (6)
  1. ACEBUTOLOL HCL [Suspect]
     Indication: TACHYCARDIA
     Dosage: 200MG QD, ORAL
     Route: 048
     Dates: start: 20041016, end: 20041018
  2. NORTRIPTYLINE HCL [Concomitant]
  3. ALENDRONATE SODIUM [Concomitant]
  4. ZOLPIDEM TARTRATE [Concomitant]
  5. LANSOPRAZOLE [Concomitant]
  6. ATORVASTATIN CALCIUM [Concomitant]

REACTIONS (7)
  - ASTHENIA [None]
  - DRUG INEFFECTIVE [None]
  - DYSGEUSIA [None]
  - DYSPNOEA [None]
  - FEELING ABNORMAL [None]
  - HEART RATE INCREASED [None]
  - HYPERHIDROSIS [None]
